FAERS Safety Report 4467838-6 (Version None)
Quarter: 2004Q4

REPORT INFORMATION
  Report Type: 
  Country: None (occurrence: None)
  Receive Date: 20041004
  Receipt Date: 20040921
  Transmission Date: 20050328
  Serious: Yes (Hospitalization)
  Sender: FDA-Public Use
  Company Number: 2004069229

PATIENT
  Age: 65 Year
  Sex: Male

DRUGS (2)
  1. VIAGRA [Suspect]
     Indication: ERECTILE DYSFUNCTION
     Dosage: 50 MG (50 MG, 1 IN 1 AS NECESSARY), ORAL
     Route: 048
     Dates: end: 20040918
  2. ACETYLSALICYLIC ACID SRT [Concomitant]

REACTIONS (1)
  - AMNESIA [None]
